FAERS Safety Report 25636184 (Version 1)
Quarter: 2025Q3

REPORT INFORMATION
  Report Type: Spontaneous
  Country: US (occurrence: US)
  Receive Date: 20250803
  Receipt Date: 20250803
  Transmission Date: 20251021
  Serious: No
  Sender: IPSEN BIOPHARMACEUTICALS, INC.
  Company Number: US-IPSEN Group, Research and Development-2025-18557

PATIENT
  Sex: Male
  Weight: 67.99 kg

DRUGS (8)
  1. IQIRVO [Suspect]
     Active Substance: ELAFIBRANOR
     Indication: Primary biliary cholangitis
     Dosage: 80MG DAILY
  2. DOXEPIN HYDROCHLORIDE [Concomitant]
     Active Substance: DOXEPIN HYDROCHLORIDE
  3. ZAVZPRET [Concomitant]
     Active Substance: ZAVEGEPANT HYDROCHLORIDE
  4. METHOCARBAMOL [Concomitant]
     Active Substance: METHOCARBAMOL
  5. HYDROXYZINE HYDROCHLORIDE [Concomitant]
     Active Substance: HYDROXYZINE HYDROCHLORIDE
  6. BETAMETHASONE DIPROP AUGMENTED [Concomitant]
  7. AIMOVIG [Concomitant]
     Active Substance: ERENUMAB-AOOE
  8. EPINEPHRINE [Concomitant]
     Active Substance: EPINEPHRINE

REACTIONS (2)
  - Arthralgia [Unknown]
  - Blood bilirubin increased [Unknown]
